FAERS Safety Report 8411816-9 (Version None)
Quarter: 2012Q2

REPORT INFORMATION
  Report Type: 
  Country: None (occurrence: None)
  Receive Date: 20120605
  Receipt Date: 20120510
  Transmission Date: 20120825
  Serious: No
  Sender: FDA-Public Use
  Company Number: US-AMGEN-USASP2012026221

PATIENT
  Age: 63 Year
  Sex: Female

DRUGS (4)
  1. PREDNISONE [Concomitant]
     Dosage: UNK
  2. FOLIC ACID [Concomitant]
     Dosage: UNK
  3. ENBREL [Suspect]
     Indication: RHEUMATOID ARTHRITIS
     Dosage: 50 MG, QWK
     Dates: start: 20120301
  4. METHOTREXATE [Concomitant]
     Dosage: UNK

REACTIONS (5)
  - RHEUMATOID ARTHRITIS [None]
  - FATIGUE [None]
  - INJECTION SITE HAEMATOMA [None]
  - ALOPECIA [None]
  - SWELLING FACE [None]
